FAERS Safety Report 4343573-X (Version None)
Quarter: 2004Q2

REPORT INFORMATION
  Report Type: 
  Country: None (occurrence: None)
  Receive Date: 20040419
  Receipt Date: 20040406
  Transmission Date: 20050107
  Serious: Yes (Hospitalization)
  Sender: FDA-Public Use
  Company Number: 2004018548

PATIENT
  Age: 60 Year
  Sex: Female

DRUGS (1)
  1. ZITHROMAX [Suspect]
     Indication: ILL-DEFINED DISORDER
     Dosage: 500 MG (DAILY), ORAL
     Route: 048
     Dates: start: 20040301

REACTIONS (2)
  - ASTHENIA [None]
  - DIZZINESS [None]
